FAERS Safety Report 9062403 (Version 6)
Quarter: 2013Q4

REPORT INFORMATION
  Report Type: Report from Study
  Country: JP (occurrence: JP)
  Receive Date: 20130213
  Receipt Date: 20131202
  Transmission Date: 20140711
  Serious: Yes (Other)
  Sender: FDA-Public Use
  Company Number: JP-GLAXOSMITHKLINE-B0866986A

PATIENT
  Age: 44 Year
  Sex: Female
  Weight: 35 kg

DRUGS (7)
  1. VOTRIENT 200MG [Suspect]
     Indication: SOFT TISSUE CANCER
     Dosage: 400MG PER DAY
     Route: 048
     Dates: start: 20121226, end: 20130122
  2. VOTRIENT 200MG [Suspect]
     Indication: SOFT TISSUE CANCER
     Dosage: 600MG PER DAY
     Route: 048
     Dates: start: 20130123, end: 20130205
  3. VOTRIENT 200MG [Suspect]
     Indication: SOFT TISSUE CANCER
     Dosage: 800MG PER DAY
     Route: 048
     Dates: start: 20130206, end: 20130227
  4. VOTRIENT 200MG [Suspect]
     Indication: SOFT TISSUE CANCER
     Dosage: 600MG PER DAY
     Route: 048
     Dates: start: 20130312, end: 20130410
  5. LANSOPRAZOLE [Concomitant]
     Route: 065
  6. ZOMETA [Concomitant]
     Route: 042
     Dates: start: 20121031, end: 20130108
  7. RANMARK [Concomitant]
     Route: 058
     Dates: start: 20130130, end: 20130315

REACTIONS (4)
  - Proteinuria [Recovered/Resolved]
  - Hair colour changes [Not Recovered/Not Resolved]
  - Malaise [Recovered/Resolved]
  - Hypertension [Recovering/Resolving]
